FAERS Safety Report 8778290 (Version 3)
Quarter: 2013Q1

REPORT INFORMATION
  Report Type: Report from Study
  Country: JP (occurrence: JP)
  Receive Date: 20120912
  Receipt Date: 20130102
  Transmission Date: 20140127
  Serious: Yes (Other)
  Sender: FDA-Public Use
  Company Number: JP-B.I. PHARMACEUTICALS,INC./RIDGEFIELD-2012-BP-21532NB

PATIENT
  Age: 88 Year
  Sex: Female
  Weight: 48.4 kg

DRUGS (6)
  1. MICAMLO COMBINATION [Suspect]
     Indication: HYPERTENSION
     Route: 048
     Dates: start: 20110525
  2. GASMOTIN [Concomitant]
     Route: 048
     Dates: end: 20111212
  3. MAGLAX [Concomitant]
     Dosage: 990 MG
     Route: 048
  4. OM [Concomitant]
     Dosage: 3.9 G
     Route: 048
     Dates: end: 20111212
  5. RABEPRAZOLE NA [Concomitant]
     Dosage: 10 MG
     Route: 048
  6. ELPINAN [Concomitant]
     Dosage: 20 MG
     Route: 048
     Dates: end: 20111212

REACTIONS (3)
  - Transient ischaemic attack [Recovered/Resolved]
  - Angina pectoris [Not Recovered/Not Resolved]
  - Dizziness [Not Recovered/Not Resolved]
